FAERS Safety Report 6433422-8 (Version None)
Quarter: 2009Q4

REPORT INFORMATION
  Report Type: 
  Country: None (occurrence: None)
  Receive Date: 20091106
  Receipt Date: 20091106
  Transmission Date: 20100525
  Serious: No
  Sender: FDA-Public Use
  Company Number: None

PATIENT
  Age: 56 Year
  Sex: Female
  Weight: 72.5755 kg

DRUGS (1)
  1. PROVENTIL [Suspect]
     Indication: ASTHMA

REACTIONS (5)
  - DRUG INEFFECTIVE [None]
  - LUNG DISORDER [None]
  - PRODUCT SUBSTITUTION ISSUE [None]
  - PRODUCT TASTE ABNORMAL [None]
  - REACTION TO DRUG EXCIPIENTS [None]
